FAERS Safety Report 19910028 (Version 2)
Quarter: 2021Q4

REPORT INFORMATION
  Report Type: Report from Study
  Country: CN (occurrence: CN)
  Receive Date: 20211003
  Receipt Date: 20211216
  Transmission Date: 20220303
  Serious: Yes (Hospitalization, Other)
  Sender: FDA-Public Use
  Company Number: CN-NOVARTISPH-NVSC2021CN157596

PATIENT
  Age: 67 Year
  Sex: Female
  Weight: 50 kg

DRUGS (5)
  1. ZYKADIA [Suspect]
     Active Substance: CERITINIB
     Indication: Non-small cell lung cancer
     Dosage: 450 MG, QD
     Route: 048
     Dates: start: 20200922
  2. ZYKADIA [Suspect]
     Active Substance: CERITINIB
     Dosage: 450 MG, QD
     Route: 048
  3. XALKORI [Concomitant]
     Active Substance: CRIZOTINIB
     Indication: Product used for unknown indication
     Dosage: UNK
     Route: 065
  4. NIFEDIPINE [Concomitant]
     Active Substance: NIFEDIPINE
     Indication: Hypertension
     Dosage: 1 DOSAGE FORM, QD
     Route: 048
  5. OMEPRAZOLE [Concomitant]
     Active Substance: OMEPRAZOLE
     Indication: Product used for unknown indication
     Dosage: TID (1~2 PILLS/TIME)
     Route: 048

REACTIONS (5)
  - Liver injury [Recovering/Resolving]
  - Renal injury [Recovering/Resolving]
  - Abdominal pain upper [Recovering/Resolving]
  - Dizziness [Unknown]
  - Meningioma [Recovered/Resolved]

NARRATIVE: CASE EVENT DATE: 20201106
